FAERS Safety Report 8008946-2 (Version None)
Quarter: 2011Q4

REPORT INFORMATION
  Report Type: 
  Country: None (occurrence: None)
  Receive Date: 20111227
  Receipt Date: 20111214
  Transmission Date: 20120403
  Serious: Yes (Other)
  Sender: FDA-Public Use
  Company Number: US-ROCHE-1022754

PATIENT

DRUGS (2)
  1. AVASTIN [Suspect]
     Indication: BREAST CANCER METASTATIC
  2. PACLITAXEL [Suspect]
     Indication: BREAST CANCER METASTATIC
     Dosage: CYCLE=21 DAYS.

REACTIONS (11)
  - NEUTROPENIA [None]
  - BONE PAIN [None]
  - DIARRHOEA [None]
  - HYPERTENSION [None]
  - BREAST CANCER METASTATIC [None]
  - FATIGUE [None]
  - NAUSEA [None]
  - NAIL DISORDER [None]
  - NEOPLASM PROGRESSION [None]
  - TOXICITY TO VARIOUS AGENTS [None]
  - PERIPHERAL SENSORY NEUROPATHY [None]
